FAERS Safety Report 6673216-1 (Version None)
Quarter: 2010Q2

REPORT INFORMATION
  Report Type: 
  Country: None (occurrence: None)
  Receive Date: 20100408
  Receipt Date: 20100401
  Transmission Date: 20101027
  Serious: Yes (Hospitalization, Other)
  Sender: FDA-Public Use
  Company Number: US-AMGEN-QUU399639

PATIENT
  Sex: Male
  Weight: 101 kg

DRUGS (11)
  1. ARANESP [Suspect]
     Indication: RENAL FAILURE CHRONIC
     Route: 042
     Dates: start: 20100309, end: 20100331
  2. AMIODARONE HCL [Concomitant]
     Route: 042
     Dates: start: 20100120
  3. VANCOMYCIN [Concomitant]
     Dates: start: 20100222, end: 20100315
  4. PROTONIX [Concomitant]
     Dates: start: 20100304
  5. XOPENEX [Concomitant]
     Dates: start: 20100301
  6. LACTOBACILLUS ACIDOPHILUS [Concomitant]
     Dates: start: 20100226
  7. ASPIRIN [Concomitant]
     Dates: start: 20100215
  8. NYSTATIN [Concomitant]
     Dates: start: 20100124
  9. MULTI-VITAMINS [Concomitant]
     Dates: start: 20100114
  10. LIPITOR [Concomitant]
     Dates: start: 20100111
  11. PRIMAXIN [Concomitant]
     Dates: start: 20100318

REACTIONS (2)
  - HYPERSENSITIVITY [None]
  - RASH GENERALISED [None]
